FAERS Safety Report 5709806-X (Version None)
Quarter: 2008Q2

REPORT INFORMATION
  Report Type: 
  Country: None (occurrence: None)
  Receive Date: 20080418
  Receipt Date: 20080409
  Transmission Date: 20081010
  Serious: Yes (Hospitalization, Disabling)
  Sender: FDA-Public Use
  Company Number: DE-AMGEN-US273935

PATIENT
  Sex: Female
  Weight: 58 kg

DRUGS (2)
  1. ENBREL [Suspect]
     Indication: POLYARTHRITIS
     Route: 058
     Dates: start: 20010608, end: 20071230
  2. LANTAREL [Concomitant]
     Indication: POLYARTHRITIS
     Route: 058
     Dates: start: 20000629, end: 20071230

REACTIONS (1)
  - COLON CANCER METASTATIC [None]
